FAERS Safety Report 8295404 (Version 5)
Quarter: 2013Q3

REPORT INFORMATION
  Report Type: Spontaneous
  Country: US (occurrence: US)
  Receive Date: 20111216
  Receipt Date: 20130801
  Transmission Date: 20140515
  Serious: Yes (Death, Hospitalization)
  Sender: FDA-Public Use
  Company Number: US-GLAXOSMITHKLINE-A0748379A

PATIENT
  Age: 80 Year
  Sex: Male

DRUGS (2)
  1. COREG CR [Suspect]
     Indication: CARDIAC DISORDER
     Dosage: 40MG PER DAY
     Route: 048
     Dates: start: 2005
  2. ENALAPRIL [Concomitant]

REACTIONS (9)
  - Coma [Unknown]
  - Pericardial effusion [Unknown]
  - Death [Fatal]
  - Gastrointestinal tube insertion [Unknown]
  - Blood pressure increased [Unknown]
  - Dizziness [Unknown]
  - Fall [Unknown]
  - Hypotension [Unknown]
  - Cardiac disorder [Unknown]
